FAERS Safety Report 16370835 (Version 3)
Quarter: 2019Q3

REPORT INFORMATION
  Report Type: Spontaneous
  Country: JP (occurrence: JP)
  Receive Date: 20190530
  Receipt Date: 20190809
  Transmission Date: 20191004
  Serious: No
  Sender: FDA-Public Use
  Company Number: JP-GLAXOSMITHKLINE-JP2019JPN094256

PATIENT
  Sex: Female

DRUGS (3)
  1. DEPAKENE (VALPROATE SODIUM) [Concomitant]
     Dosage: UNK
     Route: 048
     Dates: start: 20140514
  2. LAMICTAL [Suspect]
     Active Substance: LAMOTRIGINE
     Indication: EPILEPSY
     Dosage: UNK
     Route: 048
     Dates: start: 201808
  3. SELENICA-R [Concomitant]
     Active Substance: VALPROATE SODIUM
     Dosage: UNK
     Route: 048
     Dates: start: 201701

REACTIONS (2)
  - Pruritus [Recovered/Resolved]
  - Peripheral swelling [Recovered/Resolved]
